FAERS Safety Report 17675256 (Version 1)
Quarter: 2020Q2

REPORT INFORMATION
  Report Type: Spontaneous
  Country: US (occurrence: US)
  Receive Date: 20200415
  Receipt Date: 20200415
  Transmission Date: 20200714
  Serious: Yes (Death)
  Sender: FDA-Public Use
  Company Number: None

PATIENT
  Age: 82 Year
  Sex: Male

DRUGS (1)
  1. CAPECITABINE 500MG [Suspect]
     Active Substance: CAPECITABINE
     Indication: COLORECTAL CANCER
     Dosage: ?          OTHER DOSE:1 TABLET;?
     Route: 048
     Dates: start: 20200321, end: 20200326

REACTIONS (3)
  - Pneumonia [None]
  - Thrombosis [None]
  - Urinary tract infection [None]

NARRATIVE: CASE EVENT DATE: 20200412
